FAERS Safety Report 21640798 (Version 1)
Quarter: 2022Q4

REPORT INFORMATION
  Report Type: Spontaneous
  Country: US (occurrence: US)
  Receive Date: 20221125
  Receipt Date: 20221125
  Transmission Date: 20230112
  Serious: No
  Sender: FDA-Public Use
  Company Number: US-JNJFOC-20221135297

PATIENT
  Age: 67 Year
  Sex: Female

DRUGS (1)
  1. TYLENOL 8 HR ARTHRITIS PAIN [Suspect]
     Active Substance: ACETAMINOPHEN
     Indication: Pain in extremity
     Dosage: 1 TABLET EVERY 8 HOURS; I WAS TAKING USUALLY 2 PER DAY AND IF THE PAIN IS REALLY SEVERE I WILL TAKE
     Route: 065
     Dates: start: 202210

REACTIONS (3)
  - Abdominal discomfort [Recovered/Resolved]
  - Incorrect dose administered [Unknown]
  - Inappropriate schedule of product administration [Unknown]

NARRATIVE: CASE EVENT DATE: 20221001
